FAERS Safety Report 8510785-0 (Version None)
Quarter: 2012Q3

REPORT INFORMATION
  Report Type: 
  Country: None (occurrence: None)
  Receive Date: 20120716
  Receipt Date: 20120711
  Transmission Date: 20120928
  Serious: No
  Sender: FDA-Public Use
  Company Number: US-PFIZER INC-2012166799

PATIENT

DRUGS (7)
  1. ALBUTEROL [Concomitant]
     Dosage: 90 UG, 2 PUFFS BY MOUTH EVERY 4 TO 6 HOUR
     Route: 048
  2. ATIVAN [Concomitant]
     Dosage: 1 MG, AS NEEDED
  3. LYRICA [Suspect]
     Dosage: 150 MG, 2X/DAY
     Route: 048
  4. VITAMIN B-12 [Concomitant]
     Dosage: UNK
  5. PROZAC [Concomitant]
     Dosage: 40 MG, 2X/DAY
  6. PROMETHAZINE HYDROCHLORIDE [Concomitant]
     Indication: NAUSEA
     Dosage: 25 MG, EVERY  4-6 HOUR AS NEEDED
     Route: 048
  7. VICODIN ES [Concomitant]
     Dosage: 7.5/750 MG EVERY 8 HOUR AS NEEDED
     Route: 048

REACTIONS (3)
  - RHINITIS ALLERGIC [None]
  - BACK PAIN [None]
  - DEPRESSION [None]
